FAERS Safety Report 7224159-6 (Version None)
Quarter: 2011Q1

REPORT INFORMATION
  Report Type: 
  Country: None (occurrence: None)
  Receive Date: 20110106
  Receipt Date: 20110106
  Transmission Date: 20110831
  Serious: No
  Sender: FDA-Public Use
  Company Number: None

PATIENT
  Sex: Female

DRUGS (1)
  1. SENSIPAR [Suspect]
     Indication: HYPERPARATHYROIDISM SECONDARY
     Dosage: 30MG TABS--TAKES BTWN 1-3 TABS/DAY DAILY BY MOUTH
     Route: 048
     Dates: start: 20100201

REACTIONS (1)
  - OEDEMA PERIPHERAL [None]
